FAERS Safety Report 23628108 (Version 2)
Quarter: 2024Q3

REPORT INFORMATION
  Report Type: Report from Study
  Country: US (occurrence: US)
  Receive Date: 20240313
  Receipt Date: 20240722
  Transmission Date: 20241017
  Serious: Yes (Disabling)
  Sender: SANOFI AVENTIS
  Company Number: US-SA-SAC20240312000934

PATIENT
  Age: 85 Year
  Sex: Female

DRUGS (1)
  1. DUPIXENT [Suspect]
     Active Substance: DUPILUMAB
     Indication: Dermatitis atopic
     Dosage: 300 MG, QOW
     Route: 058
     Dates: start: 202306

REACTIONS (10)
  - Loss of personal independence in daily activities [Unknown]
  - Skin haemorrhage [Unknown]
  - Dermatitis [Unknown]
  - Dry skin [Unknown]
  - Skin hypertrophy [Unknown]
  - Skin exfoliation [Unknown]
  - Nail picking [Unknown]
  - Erythema [Unknown]
  - Therapeutic response decreased [Unknown]
  - Drug ineffective [Unknown]
